FAERS Safety Report 15412888 (Version 1)
Quarter: 2018Q3

REPORT INFORMATION
  Report Type: Spontaneous
  Country: US (occurrence: US)
  Receive Date: 20180921
  Receipt Date: 20180921
  Transmission Date: 20181010
  Serious: Yes (Other)
  Sender: FDA-Public Use
  Company Number: US-CELGENEUS-USA-20180906492

PATIENT
  Sex: Female
  Weight: 59.02 kg

DRUGS (2)
  1. REVLIMID [Suspect]
     Active Substance: LENALIDOMIDE
     Indication: MYELODYSPLASTIC SYNDROME
     Dosage: 2.5 MILLIGRAM
     Route: 048
     Dates: start: 20180811
  2. REVLIMID [Suspect]
     Active Substance: LENALIDOMIDE
     Dosage: MON, WED, FRI EVERY OTHER WEEK
     Route: 048
     Dates: start: 201809

REACTIONS (1)
  - Pancytopenia [Unknown]
